FAERS Safety Report 5171202-4 (Version None)
Quarter: 2006Q4

REPORT INFORMATION
  Report Type: 
  Country: None (occurrence: None)
  Receive Date: 20061207
  Receipt Date: 20061207
  Transmission Date: 20070319
  Serious: Yes (Hospitalization)
  Sender: FDA-Public Use
  Company Number: None

PATIENT
  Age: 39 Year
  Sex: Female
  Weight: 45.3597 kg

DRUGS (2)
  1. ERBITUX [Suspect]
     Indication: BREAST CANCER METASTATIC
     Dosage: 375 MG WEEKLY IV
     Route: 042
     Dates: start: 20061004, end: 20061101
  2. CARBOPLATIN [Suspect]
     Indication: BREAST CANCER METASTATIC
     Dosage: VARIED WEEKLY
     Dates: start: 20061101, end: 20061108

REACTIONS (3)
  - PAIN [None]
  - POSTOPERATIVE WOUND INFECTION [None]
  - WOUND INFECTION STAPHYLOCOCCAL [None]
